FAERS Safety Report 7639271-7 (Version None)
Quarter: 2011Q3

REPORT INFORMATION
  Report Type: 
  Country: None (occurrence: None)
  Receive Date: 20110727
  Receipt Date: 20110715
  Transmission Date: 20111222
  Serious: Yes (Other)
  Sender: FDA-Public Use
  Company Number: PHHY2011JP61123

PATIENT
  Age: 37 Year
  Sex: Male

DRUGS (5)
  1. METHYLPREDNISOLONE [Concomitant]
     Dosage: 2 MG, UNK
  2. GLEEVEC [Suspect]
     Indication: CHRONIC MYELOID LEUKAEMIA
     Dosage: 200 MG, DAILY
  3. MYCOPHENOLATE MOFETIL [Concomitant]
  4. GUSPERIMUS HYDROCHLORIDE [Concomitant]
  5. STEROIDS NOS [Concomitant]

REACTIONS (3)
  - RENAL IMPAIRMENT [None]
  - TUMOUR LYSIS SYNDROME [None]
  - COMPLICATIONS OF TRANSPLANTED KIDNEY [None]
